FAERS Safety Report 13373557 (Version 1)
Quarter: 2017Q1

REPORT INFORMATION
  Report Type: Report from Study
  Country: US (occurrence: US)
  Receive Date: 20170327
  Receipt Date: 20170327
  Transmission Date: 20170429
  Serious: No
  Sender: FDA-Public Use
  Company Number: US-AMGEN-USASL2017041806

PATIENT
  Age: 13 Year
  Sex: Female

DRUGS (2)
  1. ENBREL [Suspect]
     Active Substance: ETANERCEPT
     Indication: PSORIASIS
     Dosage: 50 MG, QWK
     Route: 065
     Dates: start: 20170306
  2. DULERA [Concomitant]
     Active Substance: FORMOTEROL FUMARATE DIHYDRATE\MOMETASONE FUROATE
     Dosage: 1000 MUG, BID (TWO PUFFS TWICE A DAY)

REACTIONS (2)
  - Influenza [Recovering/Resolving]
  - Abdominal pain upper [Unknown]

NARRATIVE: CASE EVENT DATE: 201703
